FAERS Safety Report 16143040 (Version 1)
Quarter: 2019Q2

REPORT INFORMATION
  Report Type: Report from Study
  Country: US (occurrence: US)
  Receive Date: 20190401
  Receipt Date: 20190401
  Transmission Date: 20190711
  Serious: Yes (Other)
  Sender: FDA-Public Use
  Company Number: PHEH2019US013518

PATIENT
  Age: 9 Year
  Sex: Male

DRUGS (1)
  1. AFINITOR [Suspect]
     Active Substance: EVEROLIMUS
     Indication: ASTROCYTOMA, LOW GRADE
     Dosage: 2.5 MG, QD (ONCE DAILY)
     Route: 048
     Dates: start: 20171027

REACTIONS (5)
  - Infantile spasms [Unknown]
  - Streptococcal infection [Unknown]
  - Seizure [Not Recovered/Not Resolved]
  - Dyspnoea [Unknown]
  - Aggression [Unknown]

NARRATIVE: CASE EVENT DATE: 20190322
